FAERS Safety Report 21623153 (Version 1)
Quarter: 2022Q4

REPORT INFORMATION
  Report Type: Spontaneous
  Country: CA (occurrence: CA)
  Receive Date: 20221121
  Receipt Date: 20221121
  Transmission Date: 20230112
  Serious: Yes (Other)
  Sender: FDA-Public Use
  Company Number: CA-SAMSUNG BIOEPIS-SB-2022-29263

PATIENT
  Age: 68 Year
  Sex: Female
  Weight: 47 kg

DRUGS (2)
  1. INFLIXIMAB [Suspect]
     Active Substance: INFLIXIMAB
     Indication: Crohn^s disease
     Route: 042
  2. ENTOCORT [Concomitant]
     Active Substance: BUDESONIDE
     Indication: Product used for unknown indication
     Dosage: SUSTAINED RELEASE
     Route: 065

REACTIONS (7)
  - Pruritus [Unknown]
  - Arthralgia [Unknown]
  - Tooth disorder [Unknown]
  - Bartholin^s cyst [Unknown]
  - Condition aggravated [Unknown]
  - Weight decreased [Unknown]
  - Off label use [Unknown]
